FAERS Safety Report 22153020 (Version 1)
Quarter: 2023Q1

REPORT INFORMATION
  Report Type: Spontaneous
  Country: IE (occurrence: IE)
  Receive Date: 20230329
  Receipt Date: 20230329
  Transmission Date: 20230417
  Serious: Yes (Other)
  Sender: FDA-Public Use
  Company Number: IE-SUN PHARMACEUTICAL INDUSTRIES LTD-2023R1-380156

PATIENT
  Age: 46 Year
  Sex: Male
  Weight: 84 kg

DRUGS (6)
  1. FENTANYL [Interacting]
     Active Substance: FENTANYL
     Indication: General anaesthesia
     Dosage: 1 MICROGRAM/KILOGRAM, 1 TOTAL
     Route: 042
  2. FENTANYL [Interacting]
     Active Substance: FENTANYL
     Indication: Induction of anaesthesia
  3. PROPOFOL [Interacting]
     Active Substance: PROPOFOL
     Indication: General anaesthesia
     Dosage: 2 MILLIGRAM/KILOGRAM, 1 TOTAL
     Route: 065
  4. PROPOFOL [Interacting]
     Active Substance: PROPOFOL
     Indication: Induction of anaesthesia
  5. SEVOFLURANE [Interacting]
     Active Substance: SEVOFLURANE
     Indication: General anaesthesia
     Dosage: 2 PERCENT
     Route: 065
  6. SODIUM LACTATE [Concomitant]
     Active Substance: SODIUM LACTATE
     Dosage: UNK
     Route: 042

REACTIONS (2)
  - Hypotension [Recovered/Resolved]
  - Drug interaction [Recovered/Resolved]
